FAERS Safety Report 15294927 (Version 1)
Quarter: 2018Q3

REPORT INFORMATION
  Report Type: Spontaneous
  Country: US (occurrence: US)
  Receive Date: 20180820
  Receipt Date: 20180820
  Transmission Date: 20181010
  Serious: No
  Sender: FDA-Public Use
  Company Number: US-SUNOVION-2018SUN003070

PATIENT
  Age: 87 Year
  Sex: Male

DRUGS (1)
  1. APTIOM [Suspect]
     Active Substance: ESLICARBAZEPINE ACETATE
     Indication: SEIZURE
     Dosage: UNKNOWN
     Route: 048

REACTIONS (4)
  - Hot flush [Unknown]
  - Feeling cold [Unknown]
  - Burning sensation [Unknown]
  - Flushing [Unknown]

NARRATIVE: CASE EVENT DATE: 20180803
